FAERS Safety Report 7132664-6 (Version None)
Quarter: 2010Q4

REPORT INFORMATION
  Report Type: 
  Country: None (occurrence: None)
  Receive Date: 20101124
  Receipt Date: 20101124
  Transmission Date: 20110411
  Serious: Yes (Other)
  Sender: FDA-Public Use
  Company Number: None

PATIENT
  Age: 85 Year
  Sex: Female
  Weight: 84.369 kg

DRUGS (1)
  1. HYDRALAZINE HCL [Suspect]
     Indication: HYPERTENSION
     Dosage: 75MG Q6H OTHER
     Route: 050
     Dates: start: 20100925, end: 20101114

REACTIONS (2)
  - BLOOD PRESSURE SYSTOLIC INCREASED [None]
  - PANCYTOPENIA [None]
